FAERS Safety Report 4330842-2 (Version None)
Quarter: 2004Q1

REPORT INFORMATION
  Report Type: 
  Country: None (occurrence: None)
  Receive Date: 20040331
  Receipt Date: 20040325
  Transmission Date: 20041129
  Serious: Yes (Hospitalization)
  Sender: FDA-Public Use
  Company Number: 04P-163-0253923-00

PATIENT
  Age: 78 Year
  Sex: Female
  Weight: 65.7716 kg

DRUGS (7)
  1. HUMIRA [Suspect]
     Indication: RHEUMATOID ARTHRITIS
     Dosage: 40 MG, SUBCUTANEOUS
     Route: 058
     Dates: start: 20030731, end: 20030801
  2. PREDNISONE [Concomitant]
  3. CELECOXIB [Concomitant]
  4. PRINZIDE [Concomitant]
  5. TOLTERODINE TARTRATE [Concomitant]
  6. ZAFIRLUKAST [Concomitant]
  7. FLUNISOLIDE [Concomitant]

REACTIONS (1)
  - RASH [None]
